FAERS Safety Report 5450027-6 (Version None)
Quarter: 2007Q3

REPORT INFORMATION
  Report Type: 
  Country: None (occurrence: None)
  Receive Date: 20070912
  Receipt Date: 20070904
  Transmission Date: 20080115
  Serious: Yes (Other)
  Sender: FDA-Public Use
  Company Number: US-ASTRAZENECA-2007UW20823

PATIENT
  Age: 71 Year
  Sex: Male
  Weight: 86.2 kg

DRUGS (4)
  1. CRESTOR [Suspect]
     Indication: HYPERCHOLESTEROLAEMIA
     Route: 048
     Dates: start: 20070824
  2. VASOTEC [Concomitant]
  3. SULAR [Concomitant]
  4. ASPIRIN [Concomitant]

REACTIONS (3)
  - ASTHENIA [None]
  - GAIT DISTURBANCE [None]
  - PAIN IN EXTREMITY [None]
